FAERS Safety Report 9424852 (Version 1)
Quarter: 2013Q3

REPORT INFORMATION
  Report Type: Spontaneous
  Country: US (occurrence: US)
  Receive Date: 20130729
  Receipt Date: 20130729
  Transmission Date: 20140515
  Serious: No
  Sender: FDA-Public Use
  Company Number: US-PFIZER INC-2013216113

PATIENT
  Age: 58 Year
  Sex: Male

DRUGS (1)
  1. INLYTA [Suspect]
     Indication: RENAL CANCER
     Dosage: 3 MG, 2X/DAY (3 MG EVERY 12 HOURS)
     Route: 048
     Dates: start: 20130422

REACTIONS (2)
  - Sensation of heaviness [Recovering/Resolving]
  - Pain in extremity [Recovering/Resolving]
